FAERS Safety Report 18571074 (Version 1)
Quarter: 2020Q4

REPORT INFORMATION
  Report Type: Spontaneous
  Country: US (occurrence: US)
  Receive Date: 20201202
  Receipt Date: 20201202
  Transmission Date: 20210114
  Serious: No
  Sender: FDA-Public Use
  Company Number: US-NOVEN PHARMACEUTICALS, INC.-US2019000677

PATIENT

DRUGS (2)
  1. AGX ESTRADIOL FOR MINIVELLE [Suspect]
     Active Substance: ESTRADIOL
     Indication: NIGHT SWEATS
  2. AGX ESTRADIOL FOR MINIVELLE [Suspect]
     Active Substance: ESTRADIOL
     Indication: HOT FLUSH
     Dosage: 0.05 MG, UNKNOWN
     Route: 062
     Dates: start: 201909

REACTIONS (4)
  - Insomnia [Not Recovered/Not Resolved]
  - Night sweats [Not Recovered/Not Resolved]
  - Chills [Not Recovered/Not Resolved]
  - Hot flush [Not Recovered/Not Resolved]

NARRATIVE: CASE EVENT DATE: 2019
